FAERS Safety Report 7349139-1 (Version None)
Quarter: 2011Q1

REPORT INFORMATION
  Report Type: 
  Country: None (occurrence: None)
  Receive Date: 20110314
  Receipt Date: 20110302
  Transmission Date: 20110831
  Serious: Yes (Death, Life-Threatening, Hospitalization, Other)
  Sender: FDA-Public Use
  Company Number: JP-CELGENEUS-087-21880-10102086

PATIENT
  Sex: Female

DRUGS (24)
  1. SOLDEM 1 [Concomitant]
     Dosage: 500-1000ML
     Route: 051
     Dates: start: 20100915, end: 20101105
  2. CRAVIT [Concomitant]
     Indication: PROPHYLAXIS
     Dosage: 500 MILLIGRAM
     Route: 048
     Dates: start: 20100823, end: 20100903
  3. FLUCONARL [Concomitant]
     Indication: PROPHYLAXIS
     Dosage: 200 MILLIGRAM
     Route: 048
     Dates: start: 20100622, end: 20100806
  4. ASPIRIN [Concomitant]
     Indication: PROPHYLAXIS
     Dosage: 100 MILLIGRAM
     Route: 048
     Dates: start: 20100803, end: 20100804
  5. FUNGUARD [Concomitant]
     Indication: PROPHYLAXIS
     Dosage: 50 MILLIGRAM
     Route: 051
     Dates: start: 20100807, end: 20100820
  6. LANSOPRAZOLE [Concomitant]
     Indication: PROPHYLAXIS
     Dosage: 15 MILLIGRAM
     Route: 048
     Dates: start: 20100915, end: 20101104
  7. CALONAL [Concomitant]
     Indication: MULTIPLE MYELOMA
     Dosage: 1200 MILLIGRAM
     Route: 048
     Dates: start: 20100705, end: 20100914
  8. SOLDEM 1 [Concomitant]
     Indication: MULTIPLE MYELOMA
     Dosage: 1000 MILLILITER
     Route: 051
     Dates: start: 20100720, end: 20100807
  9. CRAVIT [Concomitant]
     Dosage: 500 MILLIGRAM
     Route: 048
     Dates: start: 20101009, end: 20101103
  10. ATARAX [Concomitant]
     Route: 065
  11. REVLIMID [Suspect]
     Indication: MULTIPLE MYELOMA
     Dosage: 10 MILLIGRAM
     Route: 048
     Dates: start: 20100803, end: 20100823
  12. REVLIMID [Suspect]
     Dosage: 15 MILLIGRAM
     Route: 048
     Dates: start: 20100831, end: 20100905
  13. OMEPRAZOLE [Concomitant]
     Indication: PROPHYLAXIS
     Dosage: 20 MILLIGRAM
     Route: 048
     Dates: start: 20080426, end: 20100914
  14. OMEGACIN [Concomitant]
     Indication: RENAL FAILURE CHRONIC
     Dosage: .9 GRAM
     Route: 051
     Dates: start: 20100810, end: 20100823
  15. SOLU-CORTEF [Concomitant]
     Indication: RENAL FAILURE CHRONIC
     Dosage: 150 MILLIGRAM
     Route: 051
     Dates: start: 20100811, end: 20100819
  16. BONALON [Concomitant]
     Indication: PROPHYLAXIS
     Dosage: 35 MILLIGRAM
     Route: 048
     Dates: start: 20081006, end: 20100912
  17. BAKTAR [Concomitant]
     Indication: PROPHYLAXIS
     Dosage: 4 TABLET
     Route: 048
     Dates: start: 20080428, end: 20100913
  18. LASIX [Concomitant]
     Indication: MULTIPLE MYELOMA
     Dosage: 10 MILLIGRAM
     Route: 048
     Dates: start: 20100922, end: 20101012
  19. LASIX [Concomitant]
     Indication: CARDIAC FAILURE
     Dosage: 20 MILLIGRAM
     Route: 051
     Dates: start: 20101013, end: 20101020
  20. REVLIMID [Suspect]
     Dosage: 10 MILLIGRAM
     Route: 048
     Dates: start: 20100921, end: 20100930
  21. BFLUIID [Concomitant]
     Indication: MULTIPLE MYELOMA
     Dosage: 500-1000ML
     Route: 051
     Dates: start: 20100807, end: 20100823
  22. REVLIMID [Suspect]
     Dosage: 10 MILLIGRAM
     Route: 048
     Dates: start: 20101019, end: 20101029
  23. PENTAZOCINE LACTATE [Concomitant]
     Indication: MULTIPLE MYELOMA
     Dosage: 30 MILLIGRAM
     Route: 051
     Dates: start: 20100807, end: 20100810
  24. FIRSTCIN [Concomitant]
     Indication: RENAL FAILURE CHRONIC
     Dosage: 3 GRAM
     Route: 051
     Dates: start: 20100807, end: 20100810

REACTIONS (9)
  - THROMBOCYTOPENIA [None]
  - BACTERAEMIA [None]
  - VOMITING [None]
  - RENAL FAILURE [None]
  - CARDIAC FAILURE [None]
  - NEUTROPENIA [None]
  - PNEUMONIA [None]
  - MULTIPLE MYELOMA [None]
  - NAUSEA [None]
